FAERS Safety Report 11934497 (Version 1)
Quarter: 2016Q1

REPORT INFORMATION
  Report Type: Spontaneous
  Country: US (occurrence: None)
  Receive Date: 20160120
  Receipt Date: 20160120
  Transmission Date: 20160526
  Serious: Yes (Disabling)
  Sender: FDA-Public Use
  Company Number: None

PATIENT
  Age: 63 Year
  Sex: Male
  Weight: 68.04 kg

DRUGS (3)
  1. CIALIS [Concomitant]
     Active Substance: TADALAFIL
  2. PRAVASTATIN [Suspect]
     Active Substance: PRAVASTATIN\PRAVASTATIN SODIUM
     Dosage: ONE PILL PER DAY ONCE DAILY TAKEN BY MOUTH
     Route: 048
  3. MULTI VITAMIN [Concomitant]
     Active Substance: VITAMINS

REACTIONS (2)
  - Myalgia [None]
  - Amnesia [None]

NARRATIVE: CASE EVENT DATE: 20160118
